FAERS Safety Report 16647705 (Version 1)
Quarter: 2019Q3

REPORT INFORMATION
  Report Type: Spontaneous
  Country: TN (occurrence: TN)
  Receive Date: 20190730
  Receipt Date: 20190730
  Transmission Date: 20191004
  Serious: Yes (Hospitalization)
  Sender: FDA-Public Use
  Company Number: TN-MYLANLABS-2019M1071082

PATIENT
  Age: 18 Year
  Sex: Male

DRUGS (4)
  1. EPINEPHRINE. [Suspect]
     Active Substance: EPINEPHRINE
     Indication: HAEMODYNAMIC INSTABILITY
     Dosage: 0.08 MICROGRAM/KILOGRAM, QMINUTE
     Route: 041
  2. EPINEPHRINE. [Interacting]
     Active Substance: EPINEPHRINE
     Dosage: 0.14 MICROGRAM/KILOGRAM, QMINUTE
     Route: 041
  3. ACEBUTOLOL [Interacting]
     Active Substance: ACEBUTOLOL
     Indication: PRODUCT USED FOR UNKNOWN INDICATION
     Dosage: 5600 MILLIGRAM
     Route: 048
  4. ISOTONIC SODIUM CHLORIDE SOLUTION [Concomitant]
     Active Substance: SODIUM CHLORIDE
     Indication: PRODUCT USED FOR UNKNOWN INDICATION
     Dosage: 700 MILLILITER
     Route: 065

REACTIONS (2)
  - Stress cardiomyopathy [Recovered/Resolved]
  - Drug interaction [Recovered/Resolved]
